FAERS Safety Report 5297938-2 (Version None)
Quarter: 2007Q2

REPORT INFORMATION
  Report Type: 
  Country: None (occurrence: None)
  Receive Date: 20070416
  Receipt Date: 20070410
  Transmission Date: 20071010
  Serious: Yes (Hospitalization)
  Sender: FDA-Public Use
  Company Number: JP-JPN-A200701359

PATIENT
  Age: 53 Year
  Sex: Male
  Weight: 63 kg

DRUGS (7)
  1. RELENZA [Suspect]
     Dosage: 10MG TWICE PER DAY
     Route: 055
     Dates: start: 20070308, end: 20070309
  2. HUSCODE [Concomitant]
     Indication: NASOPHARYNGITIS
     Route: 048
     Dates: start: 20070308, end: 20070309
  3. MUCODYNE [Concomitant]
     Indication: NASOPHARYNGITIS
     Dosage: 1500MG PER DAY
     Route: 048
     Dates: start: 20070308, end: 20070309
  4. PERIACTIN [Concomitant]
     Indication: NASOPHARYNGITIS
     Dosage: 6MG PER DAY
     Route: 048
     Dates: start: 20070308, end: 20070309
  5. TRANSAMIN [Concomitant]
     Indication: NASOPHARYNGITIS
     Dosage: 750MG PER DAY
     Route: 048
     Dates: start: 20070308, end: 20070309
  6. ROCEPHIN [Concomitant]
     Indication: INFECTED EPIDERMAL CYST
     Dosage: 2G PER DAY
     Route: 042
     Dates: start: 20070306, end: 20070310
  7. MEIACT [Concomitant]
     Indication: INFECTED EPIDERMAL CYST
     Route: 048
     Dates: start: 20070310

REACTIONS (3)
  - DRUG ERUPTION [None]
  - PNEUMONIA [None]
  - RASH [None]
